FAERS Safety Report 10410042 (Version 1)
Quarter: 2014Q3

REPORT INFORMATION
  Report Type: Spontaneous
  Country: US (occurrence: US)
  Receive Date: 20140826
  Receipt Date: 20140826
  Transmission Date: 20150326
  Serious: Yes (Death)
  Sender: FDA-Public Use
  Company Number: US-DYAX CORP.-2014DX000156

PATIENT
  Age: 21 Year
  Sex: Female
  Weight: 77.18 kg

DRUGS (3)
  1. CINRYZE [Concomitant]
     Active Substance: HUMAN C1-ESTERASE INHIBITOR
     Indication: HEREDITARY ANGIOEDEMA
     Route: 065
  2. PRENATAL VITAMIN [Concomitant]
     Active Substance: VITAMINS
     Indication: VITAMIN SUPPLEMENTATION
     Route: 065
  3. KALBITOR [Suspect]
     Active Substance: ECALLANTIDE
     Indication: HEREDITARY ANGIOEDEMA
     Route: 058
     Dates: start: 201011

REACTIONS (2)
  - Road traffic accident [Fatal]
  - Pregnancy [Recovered/Resolved]

NARRATIVE: CASE EVENT DATE: 20140814
